FAERS Safety Report 9375885 (Version 2)
Quarter: 2013Q3

REPORT INFORMATION
  Report Type: Spontaneous
  Country: US (occurrence: US)
  Receive Date: 20130628
  Receipt Date: 20130816
  Transmission Date: 20140515
  Serious: Yes (Hospitalization, Other)
  Sender: FDA-Public Use
  Company Number: US-ALLERGAN-1309046US

PATIENT
  Age: 60 Year
  Sex: Female
  Weight: 131 kg

DRUGS (14)
  1. BOTOX [Suspect]
     Indication: MIGRAINE
     Dosage: UNK, SINGLE
     Dates: start: 20130108, end: 20130108
  2. INSULIN [Concomitant]
     Indication: DIABETES MELLITUS
     Dosage: UNK
  3. NEURONTIN [Concomitant]
     Indication: NEUROPATHY PERIPHERAL
     Dosage: 1 DF, TID
     Route: 048
  4. PROLIA [Concomitant]
     Indication: OSTEOPOROSIS
     Dosage: Q 6 MONTHS
  5. DEXILANT [Concomitant]
     Indication: GASTROOESOPHAGEAL REFLUX DISEASE
     Dosage: 1 DF, QD
     Route: 048
  6. SYNTHROID [Concomitant]
     Indication: HYPOTHYROIDISM
     Dosage: UNK
  7. HYDROCORTISONE [Concomitant]
     Indication: ADRENAL DISORDER
     Dosage: UNK
  8. COUMADIN [Concomitant]
     Indication: TRANSIENT ISCHAEMIC ATTACK
     Dosage: 1 DF, QD
     Route: 048
  9. FLEXERIL [Concomitant]
     Indication: PAIN IN EXTREMITY
     Dosage: UNK UNK, PRN
     Route: 048
  10. MEVACOR [Concomitant]
     Indication: BLOOD CHOLESTEROL INCREASED
     Dosage: UNK
  11. CALCIUM [Concomitant]
     Indication: NUTRITIONAL SUPPLEMENTATION
     Dosage: UNK
  12. LORTAB [Concomitant]
     Indication: NEUROPATHY PERIPHERAL
     Dosage: UNK
  13. MORPHINE CONTIN [Concomitant]
     Indication: NEUROPATHY PERIPHERAL
     Dosage: UNK
  14. EXCEDRIN MIGRAINE [Concomitant]
     Indication: MIGRAINE
     Dosage: UNK UNK, PRN
     Route: 048

REACTIONS (16)
  - Spinal compression fracture [Unknown]
  - Dyspnoea [Not Recovered/Not Resolved]
  - Pneumonia [Not Recovered/Not Resolved]
  - Dysphagia [Not Recovered/Not Resolved]
  - Cough [Recovering/Resolving]
  - Weight decreased [Unknown]
  - Musculoskeletal disorder [Unknown]
  - Muscle atrophy [Unknown]
  - Muscle atrophy [Unknown]
  - Facial wasting [Not Recovered/Not Resolved]
  - Bronchitis [Recovering/Resolving]
  - Asthenia [Unknown]
  - Nausea [Not Recovered/Not Resolved]
  - Vomiting [Not Recovered/Not Resolved]
  - Dyspnoea [Recovering/Resolving]
  - Muscular weakness [Recovered/Resolved]
